FAERS Safety Report 11664674 (Version 3)
Quarter: 2016Q1

REPORT INFORMATION
  Report Type: Spontaneous
  Country: FR (occurrence: FR)
  Receive Date: 20151027
  Receipt Date: 20160128
  Transmission Date: 20160525
  Serious: Yes (Hospitalization)
  Sender: FDA-Public Use
  Company Number: FR-009507513-1510FRA011562

PATIENT
  Age: 65 Year
  Sex: Male

DRUGS (10)
  1. NOVORAPID [Concomitant]
     Active Substance: INSULIN ASPART
     Dosage: UNK, PRN
  2. CERTICAN [Suspect]
     Active Substance: EVEROLIMUS
     Indication: LIVER TRANSPLANT
     Dosage: UNK
     Route: 048
     Dates: start: 201408
  3. PROGRAF [Suspect]
     Active Substance: TACROLIMUS\TACROLIMUS ANHYDROUS
     Dosage: UNK
     Dates: start: 201406
  4. CLOXACILLIN [Suspect]
     Active Substance: CLOXACILLIN
     Dosage: UNK
  5. FIDAXOMICIN [Suspect]
     Active Substance: FIDAXOMICIN
     Route: 048
  6. NOVOMIX [Concomitant]
     Active Substance: INSULIN ASPART
     Dosage: 30 MG 30 IU, MORNING, NOON AND NIGHT
  7. INEXIUM [Concomitant]
     Active Substance: ESOMEPRAZOLE
     Dosage: 40 MG, QAM
  8. TAREG [Concomitant]
     Active Substance: VALSARTAN
     Dosage: 160 MG, QAM
  9. PROGRAF [Suspect]
     Active Substance: TACROLIMUS\TACROLIMUS ANHYDROUS
     Indication: LIVER TRANSPLANT
     Dosage: 1 MG, MORNING AND NIGHT
     Route: 048
     Dates: start: 201312
  10. PREVISCAN [Concomitant]
     Active Substance: FLUINDIONE
     Dosage: DEPENDING ON INR

REACTIONS (1)
  - Acute kidney injury [Recovered/Resolved with Sequelae]

NARRATIVE: CASE EVENT DATE: 20140915
